FAERS Safety Report 11348560 (Version 1)
Quarter: 2015Q3

REPORT INFORMATION
  Report Type: Spontaneous
  Country: US (occurrence: US)
  Receive Date: 20150806
  Receipt Date: 20150806
  Transmission Date: 20151125
  Serious: Yes (Other)
  Sender: FDA-Public Use
  Company Number: US-GLAXOSMITHKLINE-US2015GSK113229

PATIENT
  Sex: Female

DRUGS (1)
  1. ADVAIR HFA [Suspect]
     Active Substance: FLUTICASONE PROPIONATE\SALMETEROL XINAFOATE
     Indication: CHRONIC OBSTRUCTIVE PULMONARY DISEASE
     Dosage: UNK
     Dates: start: 2014

REACTIONS (9)
  - Cardiac pacemaker insertion [Unknown]
  - Hypertension [Unknown]
  - Cardiac output decreased [Unknown]
  - Ventricular tachycardia [Unknown]
  - Implantable defibrillator insertion [Unknown]
  - Cardiac failure congestive [Unknown]
  - Arrhythmia [Unknown]
  - Non-obstructive cardiomyopathy [Unknown]
  - Adverse drug reaction [Unknown]

NARRATIVE: CASE EVENT DATE: 201504
